FAERS Safety Report 8345344-6 (Version None)
Quarter: 2012Q2

REPORT INFORMATION
  Report Type: 
  Country: None (occurrence: None)
  Receive Date: 20120508
  Receipt Date: 20120425
  Transmission Date: 20120825
  Serious: No
  Sender: FDA-Public Use
  Company Number: US-INCYTE CORPORATION-2012IN000519

PATIENT
  Sex: Male
  Weight: 79.365 kg

DRUGS (2)
  1. JAKAFI [Suspect]
     Indication: MYELOPROLIFERATIVE DISORDER
     Dosage: 20 MG, BID
     Route: 048
     Dates: start: 20120220, end: 20120404
  2. JAKAFI [Suspect]
     Dosage: 1/2 DOSE: 10 MG, BID
     Route: 048
     Dates: start: 20120411

REACTIONS (6)
  - BLOOD ALBUMIN DECREASED [None]
  - HAEMORRHAGE SUBCUTANEOUS [None]
  - ANAEMIA [None]
  - RASH MACULAR [None]
  - BLOOD GLUCOSE INCREASED [None]
  - WHITE BLOOD CELL COUNT INCREASED [None]
